FAERS Safety Report 7320183-3 (Version None)
Quarter: 2011Q1

REPORT INFORMATION
  Report Type: 
  Country: None (occurrence: None)
  Receive Date: 20110228
  Receipt Date: 20110216
  Transmission Date: 20110831
  Serious: Yes (Other)
  Sender: FDA-Public Use
  Company Number: PHHY2010DE52656

PATIENT
  Age: 71 Year
  Sex: Female

DRUGS (5)
  1. ASS100 [Concomitant]
     Dosage: 100 MG
  2. ENALAPRIL [Concomitant]
     Indication: HYPERTENSION
     Dosage: 10 MG, BID
  3. VITOPTAL [Concomitant]
     Indication: MACULAR DEGENERATION
     Dosage: UNK
  4. RASILEZ [Suspect]
     Indication: HYPERTENSION
     Dosage: 1 DF (150 MG), DAILY
     Route: 048
     Dates: start: 20100415, end: 20100422
  5. RASILEZ [Suspect]
     Dosage: 0.5 DF (75 MG), DAILY
     Route: 048
     Dates: start: 20100423, end: 20100801

REACTIONS (5)
  - EXTRASYSTOLES [None]
  - PALPITATIONS [None]
  - MUSCLE SPASMS [None]
  - BLOOD PRESSURE DECREASED [None]
  - ARRHYTHMIA [None]
